FAERS Safety Report 8100492-0 (Version None)
Quarter: 2012Q1

REPORT INFORMATION
  Report Type: 
  Country: None (occurrence: None)
  Receive Date: 20120129
  Receipt Date: 20111109
  Transmission Date: 20120608
  Serious: No
  Sender: FDA-Public Use
  Company Number: US-ABBOTT-11P-163-0873193-00

PATIENT
  Sex: Female
  Weight: 73.094 kg

DRUGS (7)
  1. HUMIRA [Suspect]
     Indication: RHEUMATOID ARTHRITIS
     Dates: start: 20080101, end: 20111011
  2. HUMIRA [Suspect]
     Indication: PSORIATIC ARTHROPATHY
  3. LORTAB [Concomitant]
     Indication: PAIN
  4. PRILOSEC [Concomitant]
     Indication: GASTRIC ULCER
  5. FLEXERIL [Concomitant]
     Indication: PAIN
  6. PREDNISONE TAB [Concomitant]
     Indication: RHEUMATOID ARTHRITIS
  7. XANAX [Concomitant]
     Indication: ANXIETY

REACTIONS (1)
  - FUNGAL INFECTION [None]
